FAERS Safety Report 13178477 (Version 1)
Quarter: 2017Q1

REPORT INFORMATION
  Report Type: Spontaneous
  Country: US (occurrence: US)
  Receive Date: 20170201
  Receipt Date: 20170201
  Transmission Date: 20170428
  Serious: No
  Sender: FDA-Public Use
  Company Number: None

PATIENT
  Age: 1 Year
  Sex: Male

DRUGS (1)
  1. ALPHANATE [Suspect]
     Active Substance: HUMAN COAGULATION FACTOR VIII/VON WILLEBRAND FACTOR COMPLEX
     Indication: HAEMORRHAGIC DISORDER
     Dosage: 2000 UNITS
     Route: 042

REACTIONS (3)
  - Skin haemorrhage [None]
  - Haemorrhage [None]
  - Jaw disorder [None]

NARRATIVE: CASE EVENT DATE: 20170125
